FAERS Safety Report 19217021 (Version 1)
Quarter: 2021Q2

REPORT INFORMATION
  Report Type: Spontaneous
  Country: US (occurrence: US)
  Receive Date: 20210505
  Receipt Date: 20210505
  Transmission Date: 20210717
  Serious: Yes (Life-Threatening, Other)
  Sender: FDA-Public Use
  Company Number: None

PATIENT
  Age: 71 Year
  Sex: Male
  Weight: 97.52 kg

DRUGS (8)
  1. FELOPIDINE [Concomitant]
  2. SIMIVASTIN [Concomitant]
     Active Substance: SIMVASTATIN
  3. LISINOPRIL. [Concomitant]
     Active Substance: LISINOPRIL
  4. CRESTOR [Concomitant]
     Active Substance: ROSUVASTATIN CALCIUM
  5. VITAMIN D OR C [Concomitant]
  6. NOVOLIN 70/30 [Suspect]
     Active Substance: INSULIN HUMAN
     Indication: TYPE 1 DIABETES MELLITUS
     Dosage: ?          QUANTITY:4 BXS PER 3 REFILL;OTHER ROUTE:INJECTION?
     Dates: end: 20200319
  7. LANTUS [Concomitant]
     Active Substance: INSULIN GLARGINE
  8. CILOSTAZOL. [Concomitant]
     Active Substance: CILOSTAZOL

REACTIONS (4)
  - Blood creatine increased [None]
  - Glycosylated haemoglobin increased [None]
  - Drug ineffective [None]
  - Weight increased [None]

NARRATIVE: CASE EVENT DATE: 20201111
